FAERS Safety Report 23792384 (Version 1)
Quarter: 2024Q2

REPORT INFORMATION
  Report Type: Other
  Country: CN (occurrence: None)
  Receive Date: 20240429
  Receipt Date: 20240429
  Transmission Date: 20240716
  Serious: Yes (Other)
  Sender: FDA-Public Use
  Company Number: CN-ROCHE-3553462

PATIENT

DRUGS (7)
  1. ATEZOLIZUMAB [Suspect]
     Active Substance: ATEZOLIZUMAB
     Indication: Neoplasm malignant
     Route: 065
  2. NIVOLUMAB [Suspect]
     Active Substance: NIVOLUMAB
     Indication: Neoplasm malignant
     Route: 065
  3. PEMBROLIZUMAB [Suspect]
     Active Substance: PEMBROLIZUMAB
     Indication: Neoplasm malignant
     Route: 065
  4. DURVALUMAB [Suspect]
     Active Substance: DURVALUMAB
     Indication: Neoplasm malignant
     Route: 065
  5. CAMRELIZUMAB [Suspect]
     Active Substance: CAMRELIZUMAB
     Indication: Neoplasm malignant
     Route: 065
  6. TISLELIZUMAB [Suspect]
     Active Substance: TISLELIZUMAB
     Indication: Neoplasm malignant
     Route: 065
  7. TORIPALIMAB [Suspect]
     Active Substance: TORIPALIMAB
     Indication: Neoplasm malignant
     Route: 065

REACTIONS (12)
  - Thyroid disorder [Unknown]
  - Pruritus [Unknown]
  - Thyroiditis [Unknown]
  - Diarrhoea [Unknown]
  - Colitis [Unknown]
  - Hepatitis [Unknown]
  - Pneumonia [Unknown]
  - Neuropathy peripheral [Unknown]
  - Adrenal insufficiency [Unknown]
  - Myocarditis [Unknown]
  - Hyperglycaemia [Unknown]
  - Rash [Unknown]
